FAERS Safety Report 6804817-5 (Version None)
Quarter: 2010Q2

REPORT INFORMATION
  Report Type: 
  Country: None (occurrence: None)
  Receive Date: 20100628
  Receipt Date: 20070608
  Transmission Date: 20101027
  Serious: Yes (Other)
  Sender: FDA-Public Use
  Company Number: US-PFIZER INC-2007048317

PATIENT
  Sex: Male
  Weight: 122.5 kg

DRUGS (4)
  1. CADUET [Suspect]
     Indication: BLOOD CHOLESTEROL
     Route: 048
     Dates: start: 20070101, end: 20070607
  2. CADUET [Suspect]
     Indication: HYPERTENSION
  3. LIPITOR [Suspect]
  4. LOVASTATIN [Suspect]
     Dates: start: 20070101, end: 20070101

REACTIONS (3)
  - HYPERTENSION [None]
  - MUSCULAR WEAKNESS [None]
  - MYALGIA [None]
